FAERS Safety Report 11327232 (Version 2)
Quarter: 2015Q3

REPORT INFORMATION
  Report Type: Spontaneous
  Country: JP (occurrence: JP)
  Receive Date: 20150731
  Receipt Date: 20150827
  Transmission Date: 20151125
  Serious: Yes (Life-Threatening)
  Sender: FDA-Public Use
  Company Number: JP-PFIZER INC-2015250122

PATIENT
  Age: 67 Year
  Sex: Male
  Weight: 61 kg

DRUGS (12)
  1. ELNEOPA NO.2 [Suspect]
     Active Substance: AMINO ACIDS\CARBOHYDRATES\ELECTROLYTES NOS\VITAMINS
     Indication: NUTRITIONAL SUPPLEMENTATION
     Dosage: 1000 ML, 1X/DAY
     Route: 042
     Dates: start: 20150714, end: 20150720
  2. NEXIUM [Concomitant]
     Active Substance: ESOMEPRAZOLE MAGNESIUM
     Indication: GASTROOESOPHAGEAL REFLUX DISEASE
     Dosage: 20 MG, 1X/DAY
     Route: 048
     Dates: start: 20150507, end: 20150708
  3. VITAJECT [Concomitant]
     Active Substance: CYANOCOBALAMIN\PYRIDOXAMINE HYDROCHLORIDE\THIAMINE HYDROCHLORIDE
     Dosage: UNK UNK, 1X/DAY
     Route: 042
     Dates: start: 20150721
  4. NEOAMIYU [Concomitant]
     Active Substance: AMINO ACIDS
     Dosage: UNK, 1X/DAY
     Route: 042
     Dates: start: 20150721
  5. ELEJECT [Concomitant]
     Dosage: UNK, 1X/DAY
     Route: 042
     Dates: start: 20150721
  6. TAKEPRON [Concomitant]
     Active Substance: LANSOPRAZOLE
     Indication: GASTROOESOPHAGEAL REFLUX DISEASE
     Dosage: 30 MG, 2X/DAY
     Route: 041
     Dates: start: 20150709
  7. REBAMIPIDE [Concomitant]
     Active Substance: REBAMIPIDE
     Indication: BACK PAIN
     Dosage: 100 MG, 3X/DAY
     Route: 048
     Dates: start: 20150506, end: 20150713
  8. PROMAC [Concomitant]
     Active Substance: NITROFURANTOIN
     Indication: DYSGEUSIA
     Dosage: 0.5 G, 2X/DAY
     Route: 048
     Dates: start: 20150604, end: 20150720
  9. HICALIQ [Concomitant]
     Active Substance: CALCIUM GLUCONATE\DEXTROSE\MAGNESIUM SULFATE\POTASSIUM ACETATE\POTASSIUM PHOSPHATE, DIBASIC\ZINC SULFATE
     Dosage: UNK, 1X/DAY
     Route: 042
     Dates: start: 20150721
  10. INLYTA [Suspect]
     Active Substance: AXITINIB
     Indication: RENAL CELL CARCINOMA
     Dosage: 5 MG, 2X/DAY
     Route: 048
     Dates: start: 20150717, end: 20150721
  11. ENSURE [Concomitant]
     Active Substance: AMINO ACIDS\DEXTROSE\ELECTROLYTES NOS\SOYBEAN OIL\VITAMINS
     Indication: MALNUTRITION
     Dosage: 250 ML, 2X/DAY
     Route: 048
     Dates: start: 20150528, end: 20150713
  12. NAIXAN /00256202/ [Concomitant]
     Indication: BACK PAIN
     Dosage: 100 MG, 3X/DAY
     Route: 048
     Dates: start: 20150506, end: 20150713

REACTIONS (1)
  - Renal impairment [Not Recovered/Not Resolved]

NARRATIVE: CASE EVENT DATE: 20150721
